FAERS Safety Report 10202502 (Version 1)
Quarter: 2014Q2

REPORT INFORMATION
  Report Type: Report from Study
  Country: FR (occurrence: FR)
  Receive Date: 20140528
  Receipt Date: 20140528
  Transmission Date: 20141212
  Serious: Yes (Hospitalization)
  Sender: FDA-Public Use
  Company Number: FR-ASTRAZENECA-2014SE36008

PATIENT
  Age: 653 Month
  Sex: Female
  Weight: 78 kg

DRUGS (5)
  1. XEROQUEL [Suspect]
     Indication: BIPOLAR DISORDER
     Route: 048
     Dates: start: 20130903, end: 20131127
  2. XEROQUEL [Suspect]
     Indication: BIPOLAR DISORDER
     Route: 048
     Dates: start: 20131129
  3. OLANZAPINE [Concomitant]
     Route: 048
     Dates: start: 20130715
  4. PALMITAT [Concomitant]
     Dates: start: 20131218
  5. DEPAKOTE [Concomitant]
     Route: 048
     Dates: start: 20131129

REACTIONS (1)
  - Bipolar disorder [Recovered/Resolved]
